FAERS Safety Report 9969750 (Version 1)
Quarter: 2014Q1

REPORT INFORMATION
  Report Type: Spontaneous
  Country: US (occurrence: None)
  Receive Date: 20140304
  Receipt Date: 20140304
  Transmission Date: 20141002
  Serious: Yes (Hospitalization, Other)
  Sender: FDA-Public Use
  Company Number: 2014P1001630

PATIENT
  Age: 24 Year
  Sex: Male

DRUGS (1)
  1. ISOTRETINOIN [Suspect]
     Indication: ACNE

REACTIONS (3)
  - No therapeutic response [None]
  - Colitis [None]
  - Colitis ulcerative [None]
